FAERS Safety Report 14329586 (Version 1)
Quarter: 2017Q4

REPORT INFORMATION
  Report Type: Spontaneous
  Country: US (occurrence: US)
  Receive Date: 20171227
  Receipt Date: 20171227
  Transmission Date: 20180321
  Serious: No
  Sender: FDA-Public Use
  Company Number: PHEH2017US041416

PATIENT
  Sex: Female

DRUGS (2)
  1. SPIRONOLACTONE TABLETS USP [Suspect]
     Active Substance: SPIRONOLACTONE
     Indication: PRODUCT USED FOR UNKNOWN INDICATION
     Dosage: 50 MG, UNK
     Route: 065
  2. SPIRONOLACTONE TABLETS USP [Suspect]
     Active Substance: SPIRONOLACTONE
     Dosage: 25 MG, UNK
     Route: 065

REACTIONS (3)
  - Product taste abnormal [Unknown]
  - Tongue discomfort [Unknown]
  - Throat irritation [Unknown]
